FAERS Safety Report 15022540 (Version 2)
Quarter: 2018Q2

REPORT INFORMATION
  Report Type: Spontaneous
  Country: JP (occurrence: JP)
  Receive Date: 20180618
  Receipt Date: 20180625
  Transmission Date: 20180711
  Serious: Yes (Hospitalization, Other)
  Sender: FDA-Public Use
  Company Number: JP-GLAXOSMITHKLINE-JP2018JPN104239

PATIENT
  Age: 12 Year
  Sex: Male

DRUGS (2)
  1. SERETIDE [Suspect]
     Active Substance: FLUTICASONE PROPIONATE\SALMETEROL XINAFOATE
     Indication: ASTHMA
  2. SERETIDE [Suspect]
     Active Substance: FLUTICASONE PROPIONATE\SALMETEROL XINAFOATE
     Indication: OBLITERATIVE BRONCHIOLITIS
     Dosage: UNK
     Route: 055

REACTIONS (3)
  - Wheezing [Recovering/Resolving]
  - Condition aggravated [Unknown]
  - Obliterative bronchiolitis [Recovered/Resolved]
